FAERS Safety Report 7265981-X (Version None)
Quarter: 2011Q1

REPORT INFORMATION
  Report Type: 
  Country: None (occurrence: None)
  Receive Date: 20110131
  Receipt Date: 20110127
  Transmission Date: 20110831
  Serious: Yes (Life-Threatening, Hospitalization)
  Sender: FDA-Public Use
  Company Number: PHHY2011CZ06598

PATIENT
  Sex: Male

DRUGS (2)
  1. AMOXICILLIN AND CLAVULANATE POTASSIUM [Suspect]
     Indication: BRONCHITIS
     Dosage: 2000 G, BID
     Route: 048
     Dates: start: 20110112, end: 20110114
  2. ZYRTEC [Concomitant]
     Dosage: 10 MG, QD

REACTIONS (5)
  - DIARRHOEA [None]
  - VOMITING [None]
  - RASH GENERALISED [None]
  - DERMATITIS ALLERGIC [None]
  - GASTROENTERITIS [None]
